FAERS Safety Report 8161444-8 (Version None)
Quarter: 2012Q1

REPORT INFORMATION
  Report Type: 
  Country: None (occurrence: None)
  Receive Date: 20120224
  Receipt Date: 20120215
  Transmission Date: 20120608
  Serious: Yes (Other)
  Sender: FDA-Public Use
  Company Number: JP-CELGENEUS-087-50794-12022068

PATIENT
  Age: 78 Year
  Sex: Male

DRUGS (1)
  1. VIDAZA [Suspect]
     Dosage: 75 MICROGRAM/SQ. METER
     Route: 041
     Dates: start: 20111213, end: 20111213

REACTIONS (2)
  - CEREBRAL INFARCTION [None]
  - PYREXIA [None]
